FAERS Safety Report 8315186-6 (Version None)
Quarter: 2012Q2

REPORT INFORMATION
  Report Type: 
  Country: None (occurrence: None)
  Receive Date: 20120426
  Receipt Date: 20120418
  Transmission Date: 20120825
  Serious: Yes (Hospitalization)
  Sender: FDA-Public Use
  Company Number: FR-GLAXOSMITHKLINE-B0796392A

PATIENT
  Age: 45 Year
  Sex: Male

DRUGS (2)
  1. LAMICTAL [Suspect]
     Indication: BIPOLAR DISORDER
     Dosage: 100MG THREE TIMES PER DAY
     Route: 048
     Dates: start: 20100101, end: 20120126
  2. LITHIUM CARBONATE [Suspect]
     Indication: BIPOLAR DISORDER
     Dosage: 400MG TWICE PER DAY
     Route: 048
     Dates: start: 20100101, end: 20120126

REACTIONS (4)
  - CHEILITIS [None]
  - LYMPHADENOPATHY [None]
  - INFLAMMATION [None]
  - ARTHRALGIA [None]
